FAERS Safety Report 6007369-5 (Version None)
Quarter: 2008Q4

REPORT INFORMATION
  Report Type: 
  Country: None (occurrence: None)
  Receive Date: 20081217
  Receipt Date: 20080318
  Transmission Date: 20090506
  Serious: No
  Sender: FDA-Public Use
  Company Number: US-ASTRAZENECA-2008UW05476

PATIENT
  Age: 61 Year
  Sex: Female
  Weight: 90.7 kg

DRUGS (7)
  1. CRESTOR [Suspect]
     Indication: BLOOD CHOLESTEROL INCREASED
     Route: 048
  2. GLUCOPHAGE [Concomitant]
  3. ATACAND [Concomitant]
  4. TOPROL-XL [Concomitant]
  5. FISH OIL [Concomitant]
  6. LOMOTIL [Concomitant]
  7. VITAMINS [Concomitant]

REACTIONS (2)
  - MUSCULAR WEAKNESS [None]
  - PAIN IN EXTREMITY [None]
